FAERS Safety Report 6979658-9 (Version None)
Quarter: 2010Q3

REPORT INFORMATION
  Report Type: 
  Country: None (occurrence: None)
  Receive Date: 20100910
  Receipt Date: 20100910
  Transmission Date: 20110219
  Serious: Yes (Other)
  Sender: FDA-Public Use
  Company Number: None

PATIENT
  Sex: Female
  Weight: 48.9885 kg

DRUGS (1)
  1. BOTULINUM TOXIN [Suspect]
     Indication: BLEPHAROSPASM
     Dosage: 3 MONTHS INJECTION
     Dates: start: 20100818

REACTIONS (2)
  - RASH [None]
  - URTICARIA [None]
